FAERS Safety Report 13859048 (Version 2)
Quarter: 2017Q3

REPORT INFORMATION
  Report Type: Spontaneous
  Country: AU (occurrence: AU)
  Receive Date: 20170811
  Receipt Date: 20170811
  Transmission Date: 20171127
  Serious: Yes (Other)
  Sender: FDA-Public Use
  Company Number: AU-CONCORDIA PHARMACEUTICALS INC.-GSH201708-004611

PATIENT
  Sex: Male

DRUGS (22)
  1. PARACETAMOL [Suspect]
     Active Substance: ACETAMINOPHEN
  2. FOLIC ACID. [Suspect]
     Active Substance: FOLIC ACID
  3. LORAZEPAM. [Suspect]
     Active Substance: LORAZEPAM
  4. METHOTREXATE. [Suspect]
     Active Substance: METHOTREXATE
  5. NAPROXEN. [Suspect]
     Active Substance: NAPROXEN
  6. PREDNISOLONE. [Suspect]
     Active Substance: PREDNISOLONE
  7. OXAZEPAM. [Suspect]
     Active Substance: OXAZEPAM
  8. OXYCODONE [Suspect]
     Active Substance: OXYCODONE
  9. COCAINE [Suspect]
     Active Substance: COCAINE
  10. DEXAMFETAMINE SULPHATE [Suspect]
     Active Substance: DEXTROAMPHETAMINE SULFATE
  11. FENTANYL. [Suspect]
     Active Substance: FENTANYL
  12. ZOLPIDEM [Suspect]
     Active Substance: ZOLPIDEM\ZOLPIDEM TARTRATE
  13. BUPRENORPHINE HYDROCHLORIDE. [Suspect]
     Active Substance: BUPRENORPHINE HYDROCHLORIDE
  14. ESCITALOPRAM [Suspect]
     Active Substance: ESCITALOPRAM OXALATE
  15. RITALIN [Suspect]
     Active Substance: METHYLPHENIDATE HYDROCHLORIDE
  16. CLONIDINE. [Suspect]
     Active Substance: CLONIDINE
  17. ALPRAZOLAM. [Suspect]
     Active Substance: ALPRAZOLAM
  18. PREGABALIN. [Suspect]
     Active Substance: PREGABALIN
  19. TRAMADOL. [Suspect]
     Active Substance: TRAMADOL
  20. CANNABIS PREPARATION [Suspect]
     Active Substance: CANNABIS SATIVA SUBSP. INDICA TOP
  21. PANTOPRAZOLE [Suspect]
     Active Substance: PANTOPRAZOLE
  22. TEMAZEPAM. [Suspect]
     Active Substance: TEMAZEPAM

REACTIONS (2)
  - Drug use disorder [Unknown]
  - Drug prescribing error [Unknown]
